FAERS Safety Report 21239500 (Version 1)
Quarter: 2022Q3

REPORT INFORMATION
  Report Type: Spontaneous
  Country: US (occurrence: None)
  Receive Date: 20220819
  Receipt Date: 20220819
  Transmission Date: 20221026
  Serious: Yes (Other)
  Sender: FDA-Public Use
  Company Number: None

PATIENT
  Age: 71 Year

DRUGS (1)
  1. AMIODARONE [Suspect]
     Active Substance: AMIODARONE
     Indication: Atrial fibrillation
     Dosage: OTHER QUANTITY : 1MG/MIN THEN 0.5MG;?OTHER FREQUENCY : OTHER;?
     Route: 041
     Dates: start: 20220812, end: 20220813

REACTIONS (2)
  - Phlebitis [None]
  - Deep vein thrombosis [None]

NARRATIVE: CASE EVENT DATE: 20220813
